FAERS Safety Report 5208741-3 (Version None)
Quarter: 2007Q1

REPORT INFORMATION
  Report Type: 
  Country: None (occurrence: None)
  Receive Date: 20070116
  Receipt Date: 20070108
  Transmission Date: 20070707
  Serious: Yes (Hospitalization, Other)
  Sender: FDA-Public Use
  Company Number: PHFR2007GB00494

PATIENT
  Age: 62 Year
  Sex: Female

DRUGS (1)
  1. TERBINAFINE [Suspect]
     Indication: NAIL INFECTION
     Dosage: 250 MG, QD
     Route: 065

REACTIONS (10)
  - ACUTE GENERALISED EXANTHEMATOUS PUSTULOSIS [None]
  - BLOOD CREATININE INCREASED [None]
  - LEUKOCYTOSIS [None]
  - LYMPHOCYTIC INFILTRATION [None]
  - NEUTROPHILIA [None]
  - PYREXIA [None]
  - RASH PAPULAR [None]
  - RASH PUSTULAR [None]
  - SKIN LESION [None]
  - SKIN OEDEMA [None]
